FAERS Safety Report 25413908 (Version 1)
Quarter: 2025Q2

REPORT INFORMATION
  Report Type: Spontaneous
  Country: FR (occurrence: FR)
  Receive Date: 20250609
  Receipt Date: 20250609
  Transmission Date: 20250716
  Serious: Yes (Life-Threatening, Hospitalization, Other)
  Sender: PFIZER
  Company Number: FR-PFIZER INC-PV202500067397

PATIENT
  Age: 36 Year
  Sex: Female
  Weight: 69 kg

DRUGS (8)
  1. VOXELOTOR [Suspect]
     Active Substance: VOXELOTOR
     Indication: Sickle cell disease
     Dosage: 1500 MG, DAILY
     Dates: start: 20230613, end: 20230730
  2. VOXELOTOR [Suspect]
     Active Substance: VOXELOTOR
     Dosage: 1000 MG, DAILY
     Dates: start: 20230730, end: 20230928
  3. DEFERIPRONE [Concomitant]
     Active Substance: DEFERIPRONE
  4. FOLIC ACID [Concomitant]
     Active Substance: FOLIC ACID
  5. HYDROXYUREA [Concomitant]
     Active Substance: HYDROXYUREA
  6. RIVAROXABAN [Concomitant]
     Active Substance: RIVAROXABAN
  7. MORPHINE [Concomitant]
     Active Substance: MORPHINE
     Indication: Pain
  8. KETAMINE [Concomitant]
     Active Substance: KETAMINE
     Indication: Pain

REACTIONS (2)
  - Pulmonary embolism [Recovered/Resolved]
  - Acute chest syndrome [Recovered/Resolved]

NARRATIVE: CASE EVENT DATE: 20230101
